FAERS Safety Report 12801216 (Version 1)
Quarter: 2016Q4

REPORT INFORMATION
  Report Type: Spontaneous
  Country: US (occurrence: US)
  Receive Date: 20161003
  Receipt Date: 20161003
  Transmission Date: 20170207
  Serious: No
  Sender: FDA-Public Use
  Company Number: US-009507513-1609USA004844

PATIENT
  Age: 24 Year
  Sex: Female
  Weight: 68.93 kg

DRUGS (1)
  1. NEXPLANON [Suspect]
     Active Substance: ETONOGESTREL
     Indication: CONTRACEPTION
     Dosage: 1 DF, EVERY 3 YEARS
     Route: 059
     Dates: start: 20160729

REACTIONS (8)
  - Dysmenorrhoea [Unknown]
  - Fatigue [Unknown]
  - Menorrhagia [Recovered/Resolved]
  - Metrorrhagia [Unknown]
  - Sleep disorder [Unknown]
  - Sneezing [Unknown]
  - Menstrual disorder [Unknown]
  - Abdominal distension [Unknown]

NARRATIVE: CASE EVENT DATE: 201608
